FAERS Safety Report 14145816 (Version 2)
Quarter: 2017Q4

REPORT INFORMATION
  Report Type: Spontaneous
  Country: US (occurrence: US)
  Receive Date: 20171031
  Receipt Date: 20171218
  Transmission Date: 20180321
  Serious: Yes (Other)
  Sender: FDA-Public Use
  Company Number: US-AKORN PHARMACEUTICALS-2017AKN01259

PATIENT
  Sex: Female
  Weight: 86.17 kg

DRUGS (6)
  1. MONTELUKAST [Concomitant]
     Active Substance: MONTELUKAST SODIUM
     Dosage: 10 MG, 1X/DAY
  2. UNSPECIFIED STEROID INHALER [Concomitant]
  3. MYORISAN [Suspect]
     Active Substance: ISOTRETINOIN
     Indication: ACNE
     Dosage: 40 MG, 2X/DAY
     Dates: start: 20170927, end: 201710
  4. MAXALT [Concomitant]
     Active Substance: RIZATRIPTAN BENZOATE
  5. METFORMIN [Concomitant]
     Active Substance: METFORMIN HYDROCHLORIDE
     Dosage: 2000 MG, 1X/DAY
  6. CLARITIN [Concomitant]
     Active Substance: LORATADINE

REACTIONS (3)
  - Depression [Unknown]
  - Anxiety [Unknown]
  - Grief reaction [Unknown]

NARRATIVE: CASE EVENT DATE: 2017
